FAERS Safety Report 4713481-0 (Version None)
Quarter: 2005Q3

REPORT INFORMATION
  Report Type: 
  Country: None (occurrence: None)
  Receive Date: 20050712
  Receipt Date: 20050627
  Transmission Date: 20060218
  Serious: Yes (Life-Threatening, Hospitalization)
  Sender: FDA-Public Use
  Company Number: 2005S1005413

PATIENT
  Age: 36 Year
  Sex: Female
  Weight: 85.9 kg

DRUGS (8)
  1. RISPERIDONE [Suspect]
     Indication: INSOMNIA
     Dosage: SEE IMAGE, PO
     Route: 048
     Dates: start: 20050415, end: 20050415
  2. RISPERIDONE [Suspect]
     Indication: SCHIZOPHRENIA
     Dosage: SEE IMAGE, PO
     Route: 048
     Dates: start: 20050415, end: 20050415
  3. RISPERIDONE [Suspect]
     Indication: INSOMNIA
     Dosage: SEE IMAGE, PO
     Route: 048
     Dates: start: 20050416, end: 20050416
  4. RISPERIDONE [Suspect]
     Indication: SCHIZOPHRENIA
     Dosage: SEE IMAGE, PO
     Route: 048
     Dates: start: 20050416, end: 20050416
  5. RISPERIDONE [Suspect]
     Indication: INSOMNIA
     Dosage: SEE IMAGE, PO
     Route: 048
     Dates: start: 20050417, end: 20050509
  6. RISPERIDONE [Suspect]
     Indication: SCHIZOPHRENIA
     Dosage: SEE IMAGE, PO
     Route: 048
     Dates: start: 20050417, end: 20050509
  7. LORAZEPAM [Suspect]
     Dosage: 2 MG; QD; PO
     Route: 048
     Dates: start: 20050412, end: 20050509
  8. BENZATROPINE MESILATE [Concomitant]

REACTIONS (5)
  - DISEASE RECURRENCE [None]
  - DRUG INEFFECTIVE [None]
  - INTENTIONAL MISUSE [None]
  - OVERDOSE [None]
  - SCHIZOPHRENIA [None]
